FAERS Safety Report 9058801 (Version 2)
Quarter: 2013Q2

REPORT INFORMATION
  Report Type: Spontaneous
  Country: FR (occurrence: FR)
  Receive Date: 20130204
  Receipt Date: 20130613
  Transmission Date: 20140414
  Serious: Yes (Hospitalization)
  Sender: FDA-Public Use
  Company Number: FR-BAYER-2013-013700

PATIENT
  Age: 64 Year
  Sex: Male

DRUGS (8)
  1. IZILOX [Suspect]
     Indication: BRONCHITIS
     Dosage: 400 MG, ONCE
     Route: 048
     Dates: start: 20130107
  2. TAHOR [Concomitant]
     Dosage: 40 MG, UNK
  3. TENORMINE [Concomitant]
     Dosage: 50 MG, UNK
  4. METFORMINE [Concomitant]
  5. KARDEGIC [Concomitant]
     Dosage: 75 MG, UNK
  6. SINGULAIR [Concomitant]
  7. MIFLONIL [Concomitant]
  8. EZETROL [Concomitant]

REACTIONS (1)
  - Anaphylactoid reaction [Recovered/Resolved]
